FAERS Safety Report 6207563-4 (Version None)
Quarter: 2009Q2

REPORT INFORMATION
  Report Type: 
  Country: None (occurrence: None)
  Receive Date: 20090528
  Receipt Date: 20090511
  Transmission Date: 20091009
  Serious: No
  Sender: FDA-Public Use
  Company Number: DE-PFIZER INC-2009195642

PATIENT

DRUGS (1)
  1. ZELDOX [Suspect]
     Indication: SCHIZOPHRENIA

REACTIONS (1)
  - NO ADVERSE EVENT [None]
